FAERS Safety Report 19013262 (Version 1)
Quarter: 2021Q1

REPORT INFORMATION
  Report Type: Spontaneous
  Country: US (occurrence: US)
  Receive Date: 20210316
  Receipt Date: 20210316
  Transmission Date: 20210420
  Serious: No
  Sender: FDA-Public Use
  Company Number: US-PFIZER INC-2021223711

PATIENT
  Age: 19 Year
  Sex: Male

DRUGS (1)
  1. RAPAMUNE [Suspect]
     Active Substance: SIROLIMUS
     Dosage: 3 MG, DAILY (TAKE 1, 1MG TABLET BY MOUTH ALONG WITH 2MG TABLET TO MAKE TOTAL DAILY DOSE 3MG)
     Route: 048

REACTIONS (1)
  - Rash [Recovering/Resolving]
